FAERS Safety Report 8211649-2 (Version None)
Quarter: 2012Q1

REPORT INFORMATION
  Report Type: 
  Country: None (occurrence: None)
  Receive Date: 20120315
  Receipt Date: 20120307
  Transmission Date: 20120608
  Serious: Yes (Life-Threatening)
  Sender: FDA-Public Use
  Company Number: IT-TEVA-327882ISR

PATIENT
  Sex: Male

DRUGS (3)
  1. IRINOTECAN HCL [Suspect]
     Indication: RECTAL CANCER
     Dosage: 340 MILLIGRAM;
     Route: 042
     Dates: start: 20120114, end: 20120115
  2. ERBITUX [Suspect]
     Indication: RECTAL CANCER
     Dosage: 470 MILLIGRAM;
     Dates: start: 20120114, end: 20120115
  3. FLUOROURACIL [Suspect]
     Indication: RECTAL CANCER
     Dosage: 3000 MILLIGRAM;
     Route: 042
     Dates: start: 20120114, end: 20120115

REACTIONS (1)
  - APNOEA [None]
